FAERS Safety Report 5189892-9 (Version None)
Quarter: 2006Q4

REPORT INFORMATION
  Report Type: 
  Country: None (occurrence: None)
  Receive Date: 20061218
  Receipt Date: 20061130
  Transmission Date: 20070319
  Serious: Yes (Other)
  Sender: FDA-Public Use
  Company Number: 230770K06CAN

PATIENT
  Sex: Female

DRUGS (3)
  1. REBIF [Suspect]
     Indication: MULTIPLE SCLEROSIS
     Dates: start: 20031126
  2. PAROXETINE HYDROCHLORIDE [Concomitant]
  3. COTYLENOL [Concomitant]

REACTIONS (4)
  - APPENDICECTOMY [None]
  - CHOLECYSTECTOMY [None]
  - NEOPLASM MALIGNANT [None]
  - SPLENECTOMY [None]
